FAERS Safety Report 8976482 (Version 2)
Quarter: 2012Q4

REPORT INFORMATION
  Report Type: 
  Country: TW (occurrence: TW)
  Receive Date: 20121220
  Receipt Date: 20121230
  Transmission Date: 20130627
  Serious: Yes (Life-Threatening, Hospitalization)
  Sender: FDA-Public Use
  Company Number: TW-BRISTOL-MYERS SQUIBB COMPANY-17213984

PATIENT
  Age: 74 Year
  Sex: Male
  Weight: 67.4 kg

DRUGS (3)
  1. MITOMYCIN-C [Suspect]
     Indication: OESOPHAGEAL SQUAMOUS CELL CARCINOMA
     Dosage: Inj
     Route: 065
     Dates: start: 20120605
  2. KEMOPLAT [Suspect]
     Indication: OESOPHAGEAL SQUAMOUS CELL CARCINOMA
     Dosage: Kemoplat
     Route: 065
     Dates: start: 20120605
  3. 5-FLUOROURACIL [Suspect]
     Indication: OESOPHAGEAL SQUAMOUS CELL CARCINOMA
     Route: 065
     Dates: start: 20120605

REACTIONS (5)
  - Septic shock [Unknown]
  - Diarrhoea haemorrhagic [Recovering/Resolving]
  - Electrolyte imbalance [Unknown]
  - Nausea [Unknown]
  - Vomiting [Unknown]
